FAERS Safety Report 9144751 (Version 1)
Quarter: 2013Q1

REPORT INFORMATION
  Report Type: Spontaneous
  Country: US (occurrence: US)
  Receive Date: 20130306
  Receipt Date: 20130306
  Transmission Date: 20140127
  Serious: Yes (Other)
  Sender: FDA-Public Use
  Company Number: US-B.I. PHARMACEUTICALS,INC./RIDGEFIELD-2013-BI-05832GD

PATIENT
  Sex: 0

DRUGS (4)
  1. VIRAMUNE [Suspect]
     Indication: PROPHYLAXIS AGAINST HIV INFECTION
     Dosage: 2 DOSES
  2. ZIDOVUDINE [Suspect]
     Indication: PROPHYLAXIS AGAINST HIV INFECTION
  3. ZIDOVUDINE [Suspect]
     Route: 062
  4. LAMIVUDINE [Suspect]
     Indication: PROPHYLAXIS AGAINST HIV INFECTION

REACTIONS (3)
  - Neutropenia [Unknown]
  - Anaemia [Unknown]
  - False negative investigation result [Unknown]
